FAERS Safety Report 23552362 (Version 2)
Quarter: 2024Q1

REPORT INFORMATION
  Report Type: Report from Study
  Country: US (occurrence: US)
  Receive Date: 20240222
  Receipt Date: 20240314
  Transmission Date: 20240409
  Serious: Yes (Hospitalization)
  Sender: FDA-Public Use
  Company Number: US-JNJFOC-20240216151

PATIENT
  Age: 21 Year
  Sex: Female
  Weight: 63.2 kg

DRUGS (3)
  1. EPOPROSTENOL SODIUM [Suspect]
     Active Substance: EPOPROSTENOL SODIUM
     Indication: Pulmonary arterial hypertension
     Route: 042
  2. EPOPROSTENOL SODIUM [Suspect]
     Active Substance: EPOPROSTENOL SODIUM
     Route: 042
  3. OPSUMIT [Concomitant]
     Active Substance: MACITENTAN

REACTIONS (11)
  - Hospitalisation [Unknown]
  - Device occlusion [Unknown]
  - Drug delivery system malfunction [Not Recovered/Not Resolved]
  - Headache [Unknown]
  - Abdominal pain [Unknown]
  - Catheter site pain [Unknown]
  - Nausea [Unknown]
  - Hypotension [Unknown]
  - Asthenia [Unknown]
  - Product administration interrupted [Unknown]
  - Underdose [Unknown]

NARRATIVE: CASE EVENT DATE: 20220216
